FAERS Safety Report 5422158-8 (Version None)
Quarter: 2007Q3

REPORT INFORMATION
  Report Type: 
  Country: None (occurrence: None)
  Receive Date: 20070821
  Receipt Date: 20070821
  Transmission Date: 20080115
  Serious: Yes (Hospitalization)
  Sender: FDA-Public Use
  Company Number: None

PATIENT
  Sex: Male

DRUGS (1)
  1. GEMCITABINE [Suspect]
     Indication: PANCREATIC CARCINOMA METASTATIC
     Dosage: 1000MG/M2 Q WEEK/ 3 OUT OF 4 INTRAVENOUS DRIP
     Route: 041
     Dates: start: 20070517, end: 20070629

REACTIONS (5)
  - ANAEMIA [None]
  - HYPERTENSION [None]
  - PAIN [None]
  - PNEUMONIA PRIMARY ATYPICAL [None]
  - TREMOR [None]
